FAERS Safety Report 24443636 (Version 2)
Quarter: 2024Q4

REPORT INFORMATION
  Report Type: Report from Study
  Country: US (occurrence: US)
  Receive Date: 20241016
  Receipt Date: 20241017
  Transmission Date: 20250115
  Serious: No
  Sender: ROCHE
  Company Number: US-ROCHE-1957512

PATIENT
  Sex: Female

DRUGS (6)
  1. RITUXAN [Suspect]
     Active Substance: RITUXIMAB
     Indication: Neuromyelitis optica spectrum disorder
     Dosage: ON DAY 1 AND DAY 15
     Route: 065
     Dates: start: 20161207
  2. RITUXAN [Suspect]
     Active Substance: RITUXIMAB
     Route: 065
     Dates: start: 20170710
  3. RITUXAN [Suspect]
     Active Substance: RITUXIMAB
     Dosage: ON DAY 1 AND DAY 15
     Route: 065
  4. RITUXAN [Suspect]
     Active Substance: RITUXIMAB
     Dosage: 22/MAR/2018
     Route: 065
  5. RITUXAN [Suspect]
     Active Substance: RITUXIMAB
     Dosage: 06/APR/2018
     Route: 065
  6. RITUXAN [Suspect]
     Active Substance: RITUXIMAB
     Dosage: 500 MG SINGLE-USE VIAL
     Route: 065
     Dates: start: 20240103

REACTIONS (2)
  - No adverse event [Unknown]
  - Off label use [Unknown]
